FAERS Safety Report 9109018 (Version 1)
Quarter: 2013Q1

REPORT INFORMATION
  Report Type: Spontaneous
  Country: US (occurrence: US)
  Receive Date: 20130222
  Receipt Date: 20130222
  Transmission Date: 20140127
  Serious: Yes (Hospitalization, Other)
  Sender: FDA-Public Use
  Company Number: US-ELI_LILLY_AND_COMPANY-US201201001879

PATIENT
  Sex: Female

DRUGS (4)
  1. FORTEO [Suspect]
     Indication: OSTEOPOROSIS
     Dosage: 20 UG, QD
     Route: 065
     Dates: start: 201111
  2. FORTEO [Suspect]
     Dosage: 20 UG, QD
     Route: 065
  3. FORTEO [Suspect]
     Dosage: 20 UG, QD
     Route: 065
  4. PROZAC [Concomitant]
     Indication: DEPRESSION

REACTIONS (8)
  - Salivary gland cancer [Unknown]
  - Malaise [Unknown]
  - Depression [Not Recovered/Not Resolved]
  - Abdominal pain upper [Recovering/Resolving]
  - Weight decreased [Unknown]
  - Arthralgia [Unknown]
  - Retching [Unknown]
  - Nausea [Unknown]
